FAERS Safety Report 8961889 (Version 1)
Quarter: 2012Q4

REPORT INFORMATION
  Report Type: 
  Country: NL (occurrence: NL)
  Receive Date: 20121212
  Receipt Date: 20121212
  Transmission Date: 20130627
  Serious: Yes (Death, Hospitalization)
  Sender: FDA-Public Use
  Company Number: NL-UCBSA-035957

PATIENT
  Age: 73 Year
  Sex: Female

DRUGS (11)
  1. CIMZIA [Suspect]
     Indication: RHEUMATOID ARTHRITIS
     Dosage: WEEK 0-2-4.
     Route: 058
     Dates: start: 20110127, end: 2011
  2. CIMZIA [Suspect]
     Indication: RHEUMATOID ARTHRITIS
     Route: 058
     Dates: start: 2011, end: 20110414
  3. NEXIUM [Concomitant]
     Indication: GASTROOESOPHAGEAL REFLUX DISEASE
     Route: 048
  4. LACTULOSE [Concomitant]
     Indication: CONSTIPATION
     Dosage: DOSE: 667MG/ML
     Route: 048
  5. PARACETAMOL [Concomitant]
     Indication: PAIN
     Route: 048
  6. METOPROLOL [Concomitant]
     Indication: HYPERTENSION
     Route: 048
  7. ASCAL NEURO [Concomitant]
     Indication: ANTICOAGULANT THERAPY
     Route: 048
  8. CISORDINOL [Concomitant]
     Indication: ANXIETY
     Route: 048
  9. LOSARTAN [Concomitant]
     Indication: HYPERTENSION
     Route: 048
  10. TAVEGIL [Concomitant]
     Indication: URTICARIA
     Dosage: UNKNOWN DOSE
     Dates: start: 20110216
  11. KENACORT [Concomitant]
     Indication: RHEUMATOID ARTHRITIS
     Dosage: UNKNOWN DOSE
     Route: 030
     Dates: start: 20110427

REACTIONS (6)
  - Death [Fatal]
  - Polyneuropathy [Unknown]
  - Rheumatoid vasculitis [Unknown]
  - Hypoaesthesia [Unknown]
  - Urticaria [Unknown]
  - Inappropriate schedule of drug administration [Unknown]
